FAERS Safety Report 6530925-2 (Version None)
Quarter: 2010Q1

REPORT INFORMATION
  Report Type: 
  Country: None (occurrence: None)
  Receive Date: 20100108
  Receipt Date: 20090609
  Transmission Date: 20100710
  Serious: No
  Sender: FDA-Public Use
  Company Number: A0789735A

PATIENT
  Age: 91 Year
  Sex: Female

DRUGS (11)
  1. LOVAZA [Suspect]
     Indication: PROPHYLAXIS
     Dosage: 2CAP TWICE PER DAY
     Route: 048
     Dates: start: 20090201
  2. ARICEPT [Suspect]
     Indication: PROPHYLAXIS
     Dosage: 5MG PER DAY
     Route: 048
     Dates: start: 20090201
  3. SYNTHROID [Concomitant]
  4. ACTONEL [Concomitant]
  5. AVALIDE [Concomitant]
  6. VITAMIN COMPLEX [Concomitant]
  7. OSCAL [Concomitant]
  8. NORVASC [Concomitant]
  9. LIPITOR [Concomitant]
  10. ASPIRIN [Concomitant]
  11. SUPER B COMPLEX [Concomitant]

REACTIONS (3)
  - ABDOMINAL PAIN UPPER [None]
  - ABNORMAL DREAMS [None]
  - FLATULENCE [None]
